FAERS Safety Report 5705620-X (Version None)
Quarter: 2008Q2

REPORT INFORMATION
  Report Type: 
  Country: None (occurrence: None)
  Receive Date: 20080411
  Receipt Date: 20080402
  Transmission Date: 20081010
  Serious: Yes (Hospitalization)
  Sender: FDA-Public Use
  Company Number: IDA-00030

PATIENT
  Age: 68 Year
  Sex: Female

DRUGS (7)
  1. PROPRANOLOL [Suspect]
     Dosage: PO
     Route: 048
     Dates: start: 20080122, end: 20080226
  2. NEXIUM [Suspect]
     Dosage: PO, FORMULATION: TABLE_MUPS
     Route: 048
     Dates: start: 20080122, end: 20080304
  3. OFLOXACIN [Suspect]
     Indication: RESPIRATORY TRACT INFECTION
     Dosage: PO
     Route: 048
     Dates: start: 20080212, end: 20080229
  4. ALDACTONE [Suspect]
     Dosage: PO
     Route: 048
     Dates: start: 20080122, end: 20080304
  5. LASIX [Concomitant]
  6. AMOXICILLIN [Concomitant]
  7. PRIMPERAN TAB [Concomitant]

REACTIONS (5)
  - ERYTHEMA [None]
  - PRURITUS [None]
  - RASH MACULO-PAPULAR [None]
  - RESPIRATORY TRACT INFECTION [None]
  - VARICES OESOPHAGEAL [None]
